FAERS Safety Report 10289672 (Version 1)
Quarter: 2014Q3

REPORT INFORMATION
  Report Type: Spontaneous
  Country: DE (occurrence: None)
  Receive Date: 20140708
  Receipt Date: 20140708
  Transmission Date: 20150326
  Serious: Yes (Death)
  Sender: FDA-Public Use
  Company Number: 2424014

PATIENT
  Age: 71 Year
  Sex: Male

DRUGS (3)
  1. FLUMAZENIL. [Suspect]
     Active Substance: FLUMAZENIL
     Indication: SEDATION
  2. MIDAZOLAM [Suspect]
     Active Substance: MIDAZOLAM\MIDAZOLAM HYDROCHLORIDE
     Indication: SEDATION
  3. PROPOFOL. [Suspect]
     Active Substance: PROPOFOL
     Indication: SEDATION

REACTIONS (2)
  - Hypotension [None]
  - Respiratory failure [None]
